FAERS Safety Report 10105290 (Version 2)
Quarter: 2014Q3

REPORT INFORMATION
  Report Type: Other
  Country: US (occurrence: US)
  Receive Date: 20140424
  Receipt Date: 20140731
  Transmission Date: 20150326
  Serious: Yes (Death, Other)
  Sender: FDA-Public Use
  Company Number: US-GSKPPD-2014GSK002646

PATIENT
  Age: 71 Year
  Sex: Male

DRUGS (4)
  1. TOPROL XL [Concomitant]
     Active Substance: METOPROLOL SUCCINATE
     Route: 048
  2. AVANDIA [Suspect]
     Active Substance: ROSIGLITAZONE MALEATE
     Indication: DIABETES MELLITUS
     Route: 048
     Dates: start: 1999, end: 2006
  3. LASIX [Concomitant]
     Active Substance: FUROSEMIDE
     Route: 048
  4. VASOTEC [Concomitant]
     Active Substance: ENALAPRIL MALEATE
     Route: 048

REACTIONS (2)
  - Myocardial ischaemia [None]
  - Cardiovascular disorder [Fatal]

NARRATIVE: CASE EVENT DATE: 20060718
